FAERS Safety Report 14120887 (Version 6)
Quarter: 2018Q4

REPORT INFORMATION
  Report Type: Spontaneous
  Country: JP (occurrence: JP)
  Receive Date: 20171024
  Receipt Date: 20181227
  Transmission Date: 20190204
  Serious: Yes (Hospitalization)
  Sender: FDA-Public Use
  Company Number: JP-ASTRAZENECA-2017SF07656

PATIENT
  Age: 31314 Day
  Sex: Male
  Weight: 66 kg

DRUGS (9)
  1. VOALLA:CREAM [Concomitant]
     Indication: RASH
     Dosage: DOSE UNKNOWN, SEVERAL TIMES/DAY
     Route: 062
     Dates: start: 20170106
  2. TAGRISSO [Suspect]
     Active Substance: OSIMERTINIB
     Indication: NON-SMALL CELL LUNG CANCER
     Route: 048
     Dates: start: 20170928, end: 20171015
  3. KINDAVATE [Concomitant]
     Active Substance: CLOBETASONE BUTYRATE
     Indication: RASH
     Dosage: DOSE UNKNOWN, SEVERAL TIMES/DAY
     Route: 062
     Dates: start: 20161213
  4. SPIOLTO [Concomitant]
     Active Substance: OLODATEROL HYDROCHLORIDE\TIOTROPIUM BROMIDE MONOHYDRATE
     Indication: CHRONIC OBSTRUCTIVE PULMONARY DISEASE
     Dosage: DOSE UNKNOWN, TWO TIMES A DAY
     Route: 055
  5. VITRA [Concomitant]
     Indication: RASH
     Dosage: DOSE UNKNOWN, SEVERAL TIMES/DAY
     Route: 062
  6. TAGRISSO [Suspect]
     Active Substance: OSIMERTINIB
     Indication: NON-SMALL CELL LUNG CANCER
     Route: 048
     Dates: start: 20171030
  7. TAGRISSO [Suspect]
     Active Substance: OSIMERTINIB
     Indication: NON-SMALL CELL LUNG CANCER
     Route: 048
     Dates: start: 201712
  8. HIRUDOID [Concomitant]
     Active Substance: GLYCOSAMINOGLYCANS
     Indication: RASH
     Dosage: DOSE UNKNOWN, SEVERAL TIMES/DAY
     Route: 062
     Dates: start: 20161011
  9. LAC-B [Concomitant]
     Active Substance: BIFIDOBACTERIUM SPP.
     Indication: DIARRHOEA
     Route: 048
     Dates: start: 20170123

REACTIONS (8)
  - Nausea [Recovered/Resolved]
  - Hypercholesterolaemia [Unknown]
  - Liver disorder [Recovered/Resolved]
  - Pyrexia [Recovered/Resolved]
  - Myalgia [Recovered/Resolved]
  - Decreased appetite [Recovered/Resolved]
  - Xanthomatosis [Not Recovered/Not Resolved]
  - Diarrhoea [Recovered/Resolved]

NARRATIVE: CASE EVENT DATE: 20171013
